FAERS Safety Report 8082027-4 (Version None)
Quarter: 2012Q1

REPORT INFORMATION
  Report Type: 
  Country: None (occurrence: None)
  Receive Date: 20120130
  Receipt Date: 20120126
  Transmission Date: 20120608
  Serious: Yes (Life-Threatening, Hospitalization)
  Sender: FDA-Public Use
  Company Number: PHHO2011DE10960

PATIENT
  Sex: Female
  Weight: 72 kg

DRUGS (13)
  1. REVATIO [Concomitant]
     Indication: PULMONARY HYPERTENSION
     Dosage: 20 MG, TID
     Dates: start: 20061012, end: 20110626
  2. PHENPROCOUMON [Suspect]
     Indication: PULMONARY ARTERIAL HYPERTENSION
     Dosage: UNK
     Route: 048
     Dates: start: 20060101
  3. LEVOTHYROXINE SODIUM [Concomitant]
     Indication: THYROID DISORDER
     Dosage: 175 MG, QD
     Dates: start: 19950101, end: 20110626
  4. TORSEMIDE [Concomitant]
     Indication: RIGHT VENTRICULAR FAILURE
     Dosage: 10 MG, BID
     Dates: end: 20110626
  5. SYMBICORT [Concomitant]
     Indication: CHRONIC OBSTRUCTIVE PULMONARY DISEASE
     Dosage: UNK,MG,BID
  6. MARCUMAR [Concomitant]
     Indication: THROMBOSIS PROPHYLAXIS
     Dosage: UNK
     Dates: start: 20110627, end: 20110712
  7. LIVOCAB [Concomitant]
     Indication: NASAL CONGESTION
     Dosage: 0.5%,BID
  8. BROMAZEPAM [Concomitant]
     Indication: SLEEP DISORDER
     Dosage: 0.15 MG
     Route: 048
  9. OMEPRAZOLE [Concomitant]
     Indication: GASTRIC DISORDER
     Dosage: 40 MG, QD
  10. ALLOPURINOL [Concomitant]
     Indication: BLOOD URIC ACID INCREASED
     Dosage: 300 MG, QD
     Dates: end: 20110626
  11. IMATINIB MESYLATE [Suspect]
     Indication: PULMONARY ARTERIAL HYPERTENSION
     Dosage: 400 MG, QD
     Route: 048
     Dates: start: 20110416, end: 20110626
  12. IBUPROFEN [Suspect]
     Indication: NECK PAIN
     Dosage: 600 MG, QD
  13. SPIRONOLACTONE [Concomitant]
     Indication: DIURETIC THERAPY
     Dosage: 50 MG, QD

REACTIONS (1)
  - CONCOMITANT DISEASE PROGRESSION [None]
